FAERS Safety Report 4535301-X (Version None)
Quarter: 2004Q4

REPORT INFORMATION
  Report Type: 
  Country: None (occurrence: None)
  Receive Date: 20041214
  Receipt Date: 20040916
  Transmission Date: 20050328
  Serious: No
  Sender: FDA-Public Use
  Company Number: 2004236781US

PATIENT
  Age: 63 Year
  Sex: Female

DRUGS (6)
  1. BEXTRA [Suspect]
     Indication: CHONDROPATHY
     Dates: start: 20040907, end: 20040914
  2. VIVELLE [Concomitant]
  3. TRIAMTERENE [Concomitant]
  4. TOPROL-XL [Concomitant]
  5. LOPID [Concomitant]
  6. CORTISONE (CORTISONE) [Concomitant]

REACTIONS (3)
  - ABDOMINAL PAIN UPPER [None]
  - INSOMNIA [None]
  - LETHARGY [None]
